FAERS Safety Report 6804212-9 (Version None)
Quarter: 2010Q2

REPORT INFORMATION
  Report Type: 
  Country: None (occurrence: None)
  Receive Date: 20100628
  Receipt Date: 20070117
  Transmission Date: 20101027
  Serious: Yes (Other)
  Sender: FDA-Public Use
  Company Number: US-PFIZER INC-2007005093

PATIENT
  Sex: Female
  Weight: 47.2 kg

DRUGS (4)
  1. SUTENT [Suspect]
     Indication: RENAL CANCER
     Dates: start: 20060901
  2. NORVASC [Concomitant]
  3. TYLENOL [Concomitant]
     Dates: start: 20060901
  4. CODEINE SULFATE [Concomitant]

REACTIONS (4)
  - ABDOMINAL DISCOMFORT [None]
  - EPISTAXIS [None]
  - PLATELET COUNT DECREASED [None]
  - RENAL PAIN [None]
